FAERS Safety Report 24767260 (Version 1)
Quarter: 2024Q4

REPORT INFORMATION
  Report Type: Spontaneous
  Country: CN (occurrence: CN)
  Receive Date: 20241223
  Receipt Date: 20241223
  Transmission Date: 20250114
  Serious: Yes (Other)
  Sender: BAXTER
  Company Number: None

PATIENT
  Age: 48 Year
  Sex: Female
  Weight: 70 kg

DRUGS (4)
  1. CYCLOPHOSPHAMIDE [Suspect]
     Active Substance: CYCLOPHOSPHAMIDE
     Indication: Breast cancer female
     Dosage: 0.85 G, ONE TIME IN ONE DAY
     Route: 041
     Dates: start: 20241203, end: 20241203
  2. SODIUM CHLORIDE [Suspect]
     Active Substance: SODIUM CHLORIDE
     Indication: Medication dilution
     Dosage: 50 ML (0.9%), ONE TIME IN ONE DAY, D1, USED TO DILUTE 0.85 G OF CYCLOPHOSPHAMIDE
     Route: 041
     Dates: start: 20241203, end: 20241203
  3. SODIUM CHLORIDE [Suspect]
     Active Substance: SODIUM CHLORIDE
     Dosage: 350 ML (0.9%), ONE TIME IN ONE DAY, D1, USED TO DILUTE 120 MG OF DOCETAXEL INJECTION
     Route: 041
     Dates: start: 20241203, end: 20241203
  4. DOCETAXEL [Suspect]
     Active Substance: DOCETAXEL
     Indication: Breast cancer female
     Dosage: 120 MG, ONE TIME IN ONE DAY, D1, DILUTED WITH 350 ML OF 0.9% SODIUM CHLORIDE
     Route: 041
     Dates: start: 20241203, end: 20241203

REACTIONS (1)
  - Myelosuppression [Unknown]

NARRATIVE: CASE EVENT DATE: 20241213
